FAERS Safety Report 4537412-1 (Version None)
Quarter: 2004Q4

REPORT INFORMATION
  Report Type: 
  Country: None (occurrence: None)
  Receive Date: 20041223
  Receipt Date: 20041214
  Transmission Date: 20050328
  Serious: Yes (Other)
  Sender: FDA-Public Use
  Company Number: CH-ABBOTT-04P-151-0283717-00

PATIENT
  Age: 31 Year
  Sex: Female

DRUGS (3)
  1. DEPAKENE [Suspect]
     Indication: EPILEPSY
     Route: 048
     Dates: start: 20040903, end: 20040906
  2. DEPAKENE [Suspect]
     Route: 048
     Dates: start: 20040503, end: 20040902
  3. DEPAKENE [Suspect]

REACTIONS (2)
  - ABORTION INDUCED [None]
  - DRUG EXPOSURE DURING PREGNANCY [None]
